FAERS Safety Report 5213929-1 (Version None)
Quarter: 2007Q1

REPORT INFORMATION
  Report Type: 
  Country: None (occurrence: None)
  Receive Date: 20070117
  Receipt Date: 20070104
  Transmission Date: 20070707
  Serious: Yes (Hospitalization)
  Sender: FDA-Public Use
  Company Number: 163-21880-07010243

PATIENT
  Age: 50 Year
  Sex: Female
  Weight: 68 kg

DRUGS (13)
  1. REVLIMID [Suspect]
     Indication: MULTIPLE MYELOMA
     Dosage: SEE IMAGE
     Route: 048
     Dates: start: 20060701, end: 20060807
  2. LITHIUM CARBONATE [Suspect]
     Indication: BIPOLAR DISORDER
  3. TYLENOL [Concomitant]
  4. ACYCLOVIR [Concomitant]
  5. CEFEMINE (CEFEPIME) [Concomitant]
  6. FOLIC ACID [Concomitant]
  7. HALDOL [Concomitant]
  8. SYNTHROID [Concomitant]
  9. ATIVAN [Concomitant]
  10. PROTONIX [Concomitant]
  11. QUETIAPINE FUMARATE [Concomitant]
  12. OLANZAPINE [Concomitant]
  13. ZIPRASIDONE HCL [Concomitant]

REACTIONS (4)
  - ANTIPSYCHOTIC DRUG LEVEL INCREASED [None]
  - DRUG INTERACTION [None]
  - DRUG TOXICITY [None]
  - ENCEPHALOPATHY [None]
